FAERS Safety Report 8604902-1 (Version None)
Quarter: 2012Q3

REPORT INFORMATION
  Report Type: 
  Country: None (occurrence: None)
  Receive Date: 20120820
  Receipt Date: 20120810
  Transmission Date: 20120928
  Serious: Yes (Death, Hospitalization)
  Sender: FDA-Public Use
  Company Number: CN-ASTELLAS-2012US007056

PATIENT
  Age: 62 Year
  Sex: Male
  Weight: 77 kg

DRUGS (7)
  1. METOPROLOL TARTRATE [Concomitant]
     Indication: PRODUCT USED FOR UNKNOWN INDICATION
     Dosage: UNK
     Route: 065
  2. ISOSORBIDE MONONITRATE [Concomitant]
     Indication: PRODUCT USED FOR UNKNOWN INDICATION
     Dosage: 20 MG, UNKNOWN/D
     Route: 065
     Dates: start: 20120721
  3. ERLOTINIB HYDROCHLORIDE [Suspect]
     Indication: LUNG NEOPLASM MALIGNANT
     Dosage: 56 DF, UID/QD
     Route: 048
     Dates: start: 20110728, end: 20120406
  4. ERLOTINIB HYDROCHLORIDE [Suspect]
     Dosage: UNK
     Dates: start: 20120415
  5. ASPIRIN [Concomitant]
     Indication: PRODUCT USED FOR UNKNOWN INDICATION
     Dosage: 100 MG, UNKNOWN/D
     Route: 065
     Dates: start: 20110721
  6. ATORVASTATIN CALCIUM [Concomitant]
     Indication: PRODUCT USED FOR UNKNOWN INDICATION
     Dosage: 10 MG, UNKNOWN/D
     Route: 065
     Dates: start: 20120721
  7. ERLOTINIB HYDROCHLORIDE [Suspect]
     Dosage: 100 MG, BID
     Route: 048
     Dates: start: 20120417, end: 20120428

REACTIONS (3)
  - CEREBRAL INFARCTION [None]
  - LUNG INFECTION [None]
  - GASTROINTESTINAL HAEMORRHAGE [None]
